FAERS Safety Report 16922061 (Version 1)
Quarter: 2019Q4

REPORT INFORMATION
  Report Type: Spontaneous
  Country: CA (occurrence: CA)
  Receive Date: 20191015
  Receipt Date: 20191015
  Transmission Date: 20200122
  Serious: Yes (Hospitalization)
  Sender: FDA-Public Use
  Company Number: CA-TEVA-2019-CA-1121084

PATIENT
  Age: 63 Year
  Sex: Female

DRUGS (2)
  1. BENADRYL [Concomitant]
     Active Substance: DIPHENHYDRAMINE HYDROCHLORIDE
  2. CARBOPLATIN. [Suspect]
     Active Substance: CARBOPLATIN
     Indication: OVARIAN CANCER
     Dosage: SOLUTION INTRAVENOUS
     Route: 042

REACTIONS (6)
  - Palmar erythema [Unknown]
  - Back pain [Unknown]
  - Pruritus [Unknown]
  - Throat irritation [Unknown]
  - Swollen tongue [Unknown]
  - Flushing [Unknown]
